FAERS Safety Report 9547173 (Version 1)
Quarter: 2013Q2

REPORT INFORMATION
  Report Type: Spontaneous
  Country: US (occurrence: None)
  Receive Date: 20130606
  Receipt Date: 20130606
  Transmission Date: 20140414
  Serious: Yes (Other)
  Sender: FDA-Public Use
  Company Number: 163-POMAL-13032885

PATIENT
  Age: 65 Year
  Sex: Female

DRUGS (9)
  1. POMALYST [Suspect]
     Indication: PLASMA CELL MYELOMA
     Route: 048
     Dates: start: 20130312
  2. ACYCLOVIR (ACICLOVIR) (ACICLOVIR) [Concomitant]
  3. ARTHRITIS PAIN RELIEF (ACETYLSALICYLIC ACID) [Concomitant]
  4. ATIVAN (LORAZEPAM) [Concomitant]
  5. BACTRIM (BACTRIM) (SULFAMETHOXAZOLE, TRIMETHOPRIM) [Concomitant]
  6. BENADRYL (CLONALIN) [Concomitant]
  7. DEXAMETHASONE [Concomitant]
  8. KYPROLIS (CARFILZOMIB) [Concomitant]
  9. PROCHLORPERAZINEM MALEATE (PROCHLORPERAZINE MALEATE) [Concomitant]

REACTIONS (2)
  - Rash [None]
  - Pyrexia [None]
